FAERS Safety Report 10754424 (Version 2)
Quarter: 2015Q1

REPORT INFORMATION
  Report Type: Report from Study
  Country: US (occurrence: US)
  Receive Date: 20150202
  Receipt Date: 20150304
  Transmission Date: 20150721
  Serious: Yes (Death, Hospitalization)
  Sender: FDA-Public Use
  Company Number: US-SA-2015SA009141

PATIENT
  Age: 57 Year
  Sex: Female

DRUGS (2)
  1. CEREZYME [Suspect]
     Active Substance: IMIGLUCERASE
     Indication: GAUCHER^S DISEASE
     Dosage: DOSE:3200 UNIT(S)
     Route: 041
     Dates: start: 200503, end: 20150205
  2. CEREZYME [Suspect]
     Active Substance: IMIGLUCERASE
     Indication: GAUCHER^S DISEASE
     Dosage: DOSE:3200 UNIT(S)
     Route: 041
     Dates: start: 1998

REACTIONS (2)
  - Neoplasm malignant [Fatal]
  - Hospitalisation [Unknown]
